FAERS Safety Report 6249487-2 (Version None)
Quarter: 2009Q2

REPORT INFORMATION
  Report Type: 
  Country: None (occurrence: None)
  Receive Date: 20090629
  Receipt Date: 20090619
  Transmission Date: 20091009
  Serious: Yes (Hospitalization)
  Sender: FDA-Public Use
  Company Number: B0546488A

PATIENT
  Sex: Female
  Weight: 72 kg

DRUGS (11)
  1. MELPHALAN [Suspect]
     Indication: MULTIPLE MYELOMA
     Dosage: 14MG PER DAY
     Route: 048
     Dates: start: 20080910, end: 20090305
  2. PREDNISOLONE [Suspect]
     Indication: MULTIPLE MYELOMA
     Dosage: 69MG PER DAY
     Route: 048
     Dates: start: 20080910, end: 20090305
  3. BLINDED TRIAL MEDICATION [Suspect]
     Indication: MULTIPLE MYELOMA
     Dosage: 2CAP PER DAY
     Route: 048
     Dates: start: 20080910, end: 20090305
  4. MAXI KALZ [Concomitant]
     Indication: PERIPHERAL ARTERIAL OCCLUSIVE DISEASE
  5. PANTALOC [Concomitant]
     Indication: PROPHYLAXIS
     Dosage: 40MG PER DAY
     Dates: start: 20080801
  6. RESOCHIN [Concomitant]
     Dates: start: 20080501
  7. ATARAX [Concomitant]
     Dosage: 25MG PER DAY
     Dates: start: 20080501
  8. ZADITEN [Concomitant]
     Dates: start: 20080501
  9. OLEOVIT [Concomitant]
     Indication: MULTIPLE MYELOMA
     Dates: start: 20080801
  10. DIBONDRIN [Concomitant]
     Dates: start: 20080501
  11. ASPIRIN [Concomitant]
     Indication: PROPHYLAXIS
     Dates: start: 20080901

REACTIONS (12)
  - ANAEMIA [None]
  - BLOOD CREATININE INCREASED [None]
  - CHILLS [None]
  - COUGH [None]
  - FATIGUE [None]
  - GENERAL PHYSICAL HEALTH DETERIORATION [None]
  - HYPERCALCAEMIA [None]
  - LUNG INFILTRATION [None]
  - NEUTROPENIA [None]
  - PALLOR [None]
  - PNEUMONIA [None]
  - PRODUCTIVE COUGH [None]
